FAERS Safety Report 9358268 (Version 2)
Quarter: 2013Q3

REPORT INFORMATION
  Report Type: Spontaneous
  Country: US (occurrence: US)
  Receive Date: 20130620
  Receipt Date: 20130816
  Transmission Date: 20140515
  Serious: Yes (Other)
  Sender: FDA-Public Use
  Company Number: US-PFIZER INC-2013113594

PATIENT
  Sex: Female

DRUGS (3)
  1. DOXAZOSIN MESILATE [Suspect]
     Dosage: UNK
  2. SPIRONOLACTONE [Suspect]
     Dosage: UNK
  3. TORASEMIDE [Suspect]
     Dosage: UNK

REACTIONS (8)
  - Activities of daily living impaired [Unknown]
  - Drug hypersensitivity [Unknown]
  - Headache [Unknown]
  - Swelling face [Unknown]
  - Swollen tongue [Unknown]
  - Throat tightness [Unknown]
  - Dyspnoea [Unknown]
  - Asthenia [Unknown]
